FAERS Safety Report 4461392-0 (Version None)
Quarter: 2004Q3

REPORT INFORMATION
  Report Type: 
  Country: None (occurrence: None)
  Receive Date: 20040928
  Receipt Date: 20040309
  Transmission Date: 20050211
  Serious: Yes (Hospitalization)
  Sender: FDA-Public Use
  Company Number: PHHO2004US03691

PATIENT
  Age: 26 Year
  Sex: Female
  Weight: 91 kg

DRUGS (4)
  1. TEGASEROD VS PLACEBO [Suspect]
     Indication: IRRITABLE BOWEL SYNDROME
     Dosage: 6 MG, BID
     Route: 048
     Dates: start: 20040128, end: 20040225
  2. DULCOLAX [Concomitant]
  3. TUMS [Concomitant]
     Indication: DYSPEPSIA
     Dosage: 400 MG, QD
     Route: 048
     Dates: start: 20031227
  4. MULTI-VITAMINS [Concomitant]
     Dates: start: 20031106

REACTIONS (10)
  - ABDOMINAL PAIN UPPER [None]
  - BILIARY DYSKINESIA [None]
  - CHOLECYSTECTOMY [None]
  - CHOLECYSTITIS [None]
  - DIARRHOEA [None]
  - GASTROENTERITIS [None]
  - LEUKOCYTOSIS [None]
  - NAUSEA [None]
  - PYREXIA [None]
  - VOMITING [None]
